FAERS Safety Report 10329181 (Version 3)
Quarter: 2014Q4

REPORT INFORMATION
  Report Type: Spontaneous
  Country: JP (occurrence: JP)
  Receive Date: 20140721
  Receipt Date: 20141128
  Transmission Date: 20150528
  Serious: Yes (Hospitalization)
  Sender: FDA-Public Use
  Company Number: JP-009507513-1406JPN009816

PATIENT
  Age: 81 Year
  Sex: Female

DRUGS (6)
  1. ITRIZOLE [Concomitant]
     Active Substance: ITRACONAZOLE
     Indication: FUNGAL INFECTION
     Dosage: DAILY DOSE UNKNOWN
     Dates: start: 201404, end: 20140509
  2. PROTECADIN [Concomitant]
     Active Substance: LAFUTIDINE
     Dosage: DAILY DOSE UNKNOWN
     Route: 048
  3. TERIBONE [Suspect]
     Active Substance: TERIPARATIDE ACETATE
     Indication: OSTEOPOROSIS
     Dosage: DAILY DOSE UNKNOWN
     Route: 051
     Dates: start: 20121128, end: 20131009
  4. UNISIA [Concomitant]
     Active Substance: AMLODIPINE BESYLATE\CANDESARTAN CILEXETIL
     Indication: HYPERTENSION
     Dosage: DAILY DOSE UNKNOWN
     Route: 048
     Dates: start: 201110
  5. AMOBAN [Concomitant]
     Active Substance: ZOPICLONE
     Dosage: DAILY DOSE UNKNOWN
     Route: 048
  6. JANUVIA [Suspect]
     Active Substance: SITAGLIPTIN PHOSPHATE
     Dosage: 50 MG, 1/1DAY
     Route: 048
     Dates: start: 20130404, end: 20140612

REACTIONS (3)
  - General physical health deterioration [Unknown]
  - Pruritus [Recovered/Resolved]
  - Fungal infection [Recovered/Resolved]

NARRATIVE: CASE EVENT DATE: 20131009
